FAERS Safety Report 15360730 (Version 3)
Quarter: 2018Q3

REPORT INFORMATION
  Report Type: Spontaneous
  Country: DE (occurrence: DE)
  Receive Date: 20180907
  Receipt Date: 20180928
  Transmission Date: 20181010
  Serious: Yes (Life-Threatening, Other)
  Sender: FDA-Public Use
  Company Number: DE-TORRENT-00009702

PATIENT
  Age: 18 Year
  Sex: Female

DRUGS (4)
  1. CELECOXIB. [Suspect]
     Active Substance: CELECOXIB
     Indication: EWING^S SARCOMA
     Dosage: 200 MG, UNK
     Route: 048
  2. IMATINIB [Suspect]
     Active Substance: IMATINIB
     Indication: EWING^S SARCOMA
     Dosage: 400 MG, UNK
     Route: 048
  3. DASATINIB. [Suspect]
     Active Substance: DASATINIB
     Indication: EWING^S SARCOMA
     Dosage: 100 MG, UNK
     Route: 048
  4. EPIRUBICIN [Suspect]
     Active Substance: EPIRUBICIN
     Indication: EWING^S SARCOMA
     Dosage: FULL DOSE AFTER THE END OF RADIOTHERAPY, UNK
     Route: 042

REACTIONS (10)
  - Anaemia [Unknown]
  - Product use in unapproved indication [Unknown]
  - Nausea [Unknown]
  - Neutropenia [Unknown]
  - Thrombocytopenia [Unknown]
  - Anxiety [Unknown]
  - Depression [Unknown]
  - Vomiting [Unknown]
  - Lymphopenia [Unknown]
  - Malignant neoplasm progression [Unknown]
